FAERS Safety Report 13196208 (Version 1)
Quarter: 2017Q1

REPORT INFORMATION
  Report Type: Spontaneous
  Country: SE (occurrence: SE)
  Receive Date: 20170208
  Receipt Date: 20170208
  Transmission Date: 20170428
  Serious: Yes (Life-Threatening)
  Sender: FDA-Public Use
  Company Number: SE-TEVA-736887ACC

PATIENT
  Age: 68 Year
  Sex: Female

DRUGS (6)
  1. ABSTRAL [Concomitant]
     Active Substance: FENTANYL CITRATE
  2. NORSPAN [Concomitant]
     Active Substance: BUPRENORPHINE
  3. MORPHINE [Concomitant]
     Active Substance: MORPHINE
     Route: 042
  4. TEMGESIC [Concomitant]
     Active Substance: BUPRENORPHINE HYDROCHLORIDE
  5. LYRICA [Concomitant]
     Active Substance: PREGABALIN
  6. EFFENTORA [Suspect]
     Active Substance: FENTANYL CITRATE
     Indication: PAIN
     Dates: start: 20170123

REACTIONS (1)
  - Respiratory arrest [Recovered/Resolved]

NARRATIVE: CASE EVENT DATE: 20170123
